FAERS Safety Report 24569702 (Version 2)
Quarter: 2025Q3

REPORT INFORMATION
  Report Type: Spontaneous
  Country: CN (occurrence: None)
  Receive Date: 20241031
  Receipt Date: 20250809
  Transmission Date: 20251020
  Serious: Yes (Hospitalization, Other)
  Sender: ALEXION PHARMACEUTICALS
  Company Number: CN-ASTRAZENECA-202410CHN019206CN

PATIENT
  Age: 75 Year
  Sex: Male
  Weight: 54 kg

DRUGS (2)
  1. IMFINZI [Suspect]
     Active Substance: DURVALUMAB
     Indication: Tumour treating fields therapy
     Dosage: 1000 MILLIGRAM, QD
     Dates: start: 20240904, end: 20240904
  2. PACLITAXEL [Suspect]
     Active Substance: PACLITAXEL
     Indication: Tumour treating fields therapy
     Dosage: 200 MILLIGRAM, QD
     Dates: start: 20240904

REACTIONS (1)
  - Myelosuppression [Recovering/Resolving]

NARRATIVE: CASE EVENT DATE: 20240917
